FAERS Safety Report 6548011-4 (Version None)
Quarter: 2010Q1

REPORT INFORMATION
  Report Type: 
  Country: None (occurrence: None)
  Receive Date: 20100124
  Receipt Date: 20091117
  Transmission Date: 20100710
  Serious: Yes (Hospitalization, Other)
  Sender: FDA-Public Use
  Company Number: US-ALEXION-A200900886

PATIENT
  Sex: Male
  Weight: 85.26 kg

DRUGS (20)
  1. SOLIRIS [Suspect]
     Indication: PAROXYSMAL NOCTURNAL HAEMOGLOBINURIA
     Dosage: 600 MG, QW X 4W
     Route: 042
     Dates: start: 20081114
  2. SOLIRIS [Suspect]
     Dosage: 900 MG, Q 2W
     Route: 042
     Dates: start: 20081212
  3. AUGMENTIN '125' [Concomitant]
     Indication: DRUG USE FOR UNKNOWN INDICATION
  4. VITAMIN C                          /00008001/ [Concomitant]
     Dosage: 1000 MG, QD
  5. ASPIRIN [Concomitant]
     Dosage: 81 MG, QD
     Route: 048
  6. LOMOTIL                            /00034001/ [Concomitant]
     Dosage: FOUR TIMES DAILY AS NEEDED (PRN)
     Route: 048
  7. CALCIUM [Concomitant]
     Dosage: UNK
  8. CYANOCOBALAMIN [Concomitant]
     Dosage: 1000 UG, QD
  9. FOLIC ACID [Concomitant]
     Dosage: 800 MG, QD
  10. NEURONTIN [Concomitant]
     Dosage: 600 MG, TID
     Route: 048
  11. NEURONTIN [Concomitant]
     Dosage: 600 MG, QD
     Route: 048
  12. L-LYSINE                           /00919901/ [Concomitant]
     Dosage: UNK
  13. MULTIVITAMIN                       /00831701/ [Concomitant]
     Dosage: UNK
  14. NADOLOL [Concomitant]
     Dosage: UNK
     Route: 048
  15. LOVAZA [Concomitant]
  16. OMEPRAZOLE [Concomitant]
     Dosage: 20 MG, QD
     Route: 048
  17. PREDNISONE [Concomitant]
     Dosage: 20 MG, QD
     Route: 048
  18. ZOLOFT [Concomitant]
     Dosage: 50 MG, QD
     Route: 048
  19. ACETAMINOPHEN AND HYDROCODONE BITARTRATE [Concomitant]
     Dosage: ONE TABLE BID
     Route: 048
  20. TOPAMAX [Concomitant]
     Dosage: 25 MG, BID
     Route: 048

REACTIONS (3)
  - HAEMORRHOIDAL HAEMORRHAGE [None]
  - PNEUMONIA [None]
  - PNEUMOTHORAX [None]
